FAERS Safety Report 8531741-2 (Version None)
Quarter: 2012Q3

REPORT INFORMATION
  Report Type: 
  Country: None (occurrence: None)
  Receive Date: 20120723
  Receipt Date: 20120710
  Transmission Date: 20120928
  Serious: Yes (Other)
  Sender: FDA-Public Use
  Company Number: MX-INCYTE CORPORATION-2012IN001004

PATIENT
  Sex: Female
  Weight: 68 kg

DRUGS (4)
  1. INC424 [Suspect]
     Indication: MYELOFIBROSIS
     Dosage: 20 MG, BID
     Route: 048
     Dates: start: 20120514, end: 20120529
  2. ANALGESICS [Concomitant]
     Dosage: UNK
     Dates: start: 20120702
  3. INC424 [Suspect]
     Dosage: 5 MG, BID
     Route: 048
     Dates: start: 20120625, end: 20120626
  4. PROTON PUMP INHIBITORS [Concomitant]
     Dosage: UNK
     Dates: start: 20070201

REACTIONS (2)
  - DIZZINESS [None]
  - NAUSEA [None]
